FAERS Safety Report 16632400 (Version 1)
Quarter: 2019Q3

REPORT INFORMATION
  Report Type: Spontaneous
  Country: US (occurrence: US)
  Receive Date: 20190725
  Receipt Date: 20190725
  Transmission Date: 20191004
  Serious: No
  Sender: FDA-Public Use
  Company Number: US-ABBVIE-18S-163-2546643-00

PATIENT
  Age: 39 Year
  Sex: Female

DRUGS (1)
  1. SYNTHROID [Suspect]
     Active Substance: LEVOTHYROXINE SODIUM
     Indication: HYPOTHYROIDISM
     Route: 048
     Dates: start: 2013

REACTIONS (8)
  - Product quality issue [Unknown]
  - Malaise [Recovered/Resolved]
  - Alopecia [Recovered/Resolved]
  - Blood thyroid stimulating hormone increased [Unknown]
  - Asthenia [Recovered/Resolved]
  - Depression [Recovered/Resolved]
  - Product physical issue [Unknown]
  - Feeling abnormal [Recovered/Resolved]

NARRATIVE: CASE EVENT DATE: 201810
